FAERS Safety Report 21236203 (Version 1)
Quarter: 2022Q3

REPORT INFORMATION
  Report Type: Spontaneous
  Country: US (occurrence: US)
  Receive Date: 20220822
  Receipt Date: 20220822
  Transmission Date: 20221027
  Serious: No
  Sender: FDA-Public Use
  Company Number: US-TEVA-2022-US-2064036

PATIENT
  Sex: Female

DRUGS (1)
  1. ETONOGESTREL/ETHINYL ESTRADIOL [Suspect]
     Active Substance: ETHINYL ESTRADIOL\ETONOGESTREL
     Indication: Product used for unknown indication
     Route: 065

REACTIONS (3)
  - Administration site discomfort [Unknown]
  - Premenstrual syndrome [Unknown]
  - Product storage error [Unknown]

NARRATIVE: CASE EVENT DATE: 20220801
